FAERS Safety Report 12845368 (Version 1)
Quarter: 2016Q4

REPORT INFORMATION
  Report Type: Report from Study
  Country: CA (occurrence: CA)
  Receive Date: 20161013
  Receipt Date: 20161013
  Transmission Date: 20170207
  Serious: Yes (Hospitalization, Other)
  Sender: FDA-Public Use
  Company Number: PHHY2016CA139259

PATIENT
  Age: 82 Year
  Sex: Female

DRUGS (2)
  1. SANDOSTATIN LAR DEPOT [Suspect]
     Active Substance: OCTREOTIDE ACETATE
     Indication: GASTROINTESTINAL ANGIODYSPLASIA HAEMORRHAGIC
  2. SANDOSTATIN LAR DEPOT [Suspect]
     Active Substance: OCTREOTIDE ACETATE
     Indication: SCLERODERMA
     Dosage: 20 MG, QMO
     Route: 030
     Dates: start: 20160405, end: 20160926

REACTIONS (6)
  - Asthenia [Unknown]
  - Gait disturbance [Unknown]
  - Haemoglobin decreased [Unknown]
  - Eating disorder [Unknown]
  - Product use issue [Unknown]
  - Dizziness [Unknown]

NARRATIVE: CASE EVENT DATE: 20160405
